FAERS Safety Report 10659708 (Version 4)
Quarter: 2015Q2

REPORT INFORMATION
  Report Type: Spontaneous
  Country: SE (occurrence: SE)
  Receive Date: 20141217
  Receipt Date: 20150422
  Transmission Date: 20150821
  Serious: Yes (Death)
  Sender: FDA-Public Use
  Company Number: SE-MYLANLABS-2014M1014400

PATIENT

DRUGS (2)
  1. FONDAPARINUX [Suspect]
     Active Substance: FONDAPARINUX
     Route: 058
  2. ANGIOX [Suspect]
     Active Substance: BIVALIRUDIN

REACTIONS (1)
  - Cerebral haemorrhage [Fatal]
